FAERS Safety Report 16625209 (Version 3)
Quarter: 2019Q3

REPORT INFORMATION
  Report Type: Spontaneous
  Country: US (occurrence: US)
  Receive Date: 20190724
  Receipt Date: 20190930
  Transmission Date: 20191004
  Serious: No
  Sender: FDA-Public Use
  Company Number: US-PFIZER INC-2019311681

PATIENT
  Age: 69 Year
  Sex: Female

DRUGS (1)
  1. LYRICA [Suspect]
     Active Substance: PREGABALIN
     Dosage: UNK, DAILY(EVERY DAY)
     Dates: end: 201902

REACTIONS (3)
  - Gait disturbance [Unknown]
  - Bradyphrenia [Unknown]
  - Movement disorder [Unknown]
